FAERS Safety Report 6247143-8 (Version None)
Quarter: 2009Q2

REPORT INFORMATION
  Report Type: 
  Country: None (occurrence: None)
  Receive Date: 20090624
  Receipt Date: 20090624
  Transmission Date: 20091009
  Serious: No
  Sender: FDA-Public Use
  Company Number: None

PATIENT
  Sex: Male
  Weight: 90.8 kg

DRUGS (8)
  1. INSULIN ASPART [Suspect]
     Indication: DIABETES MELLITUS
     Dosage: SLIDING SCAL - MEDIUM
     Dates: start: 20090329, end: 20090407
  2. CARVEDILOL [Concomitant]
  3. DOCUSATE [Concomitant]
  4. FUROSEMIDE [Concomitant]
  5. LANSOPRAZOLE [Concomitant]
  6. LOSARTAN POTASSIUM [Concomitant]
  7. SENNA [Concomitant]
  8. SPIRONOLACTONE [Concomitant]

REACTIONS (1)
  - HYPOGLYCAEMIA [None]
